FAERS Safety Report 6745456-4 (Version None)
Quarter: 2010Q2

REPORT INFORMATION
  Report Type: 
  Country: None (occurrence: None)
  Receive Date: 20100528
  Receipt Date: 20100518
  Transmission Date: 20101027
  Serious: Yes (Hospitalization)
  Sender: FDA-Public Use
  Company Number: NO-BAYER-201025711GPV

PATIENT
  Age: 38 Year
  Sex: Female

DRUGS (2)
  1. MIRENA [Suspect]
     Indication: CONTRACEPTION
     Route: 015
     Dates: start: 20100430, end: 20100502
  2. CETYL K [Concomitant]
     Indication: NEPHROLITHIASIS

REACTIONS (11)
  - ABDOMINAL PAIN LOWER [None]
  - BACK PAIN [None]
  - CHILLS [None]
  - DIARRHOEA [None]
  - ENDOMETRITIS [None]
  - GENERAL PHYSICAL HEALTH DETERIORATION [None]
  - MALAISE [None]
  - PAIN [None]
  - PYREXIA [None]
  - URINARY TRACT INFECTION [None]
  - URINE ODOUR ABNORMAL [None]
